FAERS Safety Report 5346866-2 (Version None)
Quarter: 2007Q2

REPORT INFORMATION
  Report Type: 
  Country: None (occurrence: None)
  Receive Date: 20070605
  Receipt Date: 20070524
  Transmission Date: 20071010
  Serious: Yes (Hospitalization)
  Sender: FDA-Public Use
  Company Number: DK-PFIZER INC-2007044745

PATIENT
  Sex: Female
  Weight: 50 kg

DRUGS (6)
  1. GENOTROPIN [Suspect]
     Indication: GROWTH HORMONE DEFICIENCY
     Route: 058
  2. CETIRIZINE HCL [Concomitant]
     Dosage: DAILY DOSE:10MG
     Route: 048
  3. CALCICHEW [Concomitant]
     Indication: MINERAL SUPPLEMENTATION
     Route: 048
  4. LEVOTHYROXINE SODIUM [Concomitant]
     Dosage: DAILY DOSE:50
     Route: 048
  5. ACETYLSALICYLIC ACID SRT [Concomitant]
     Dosage: DAILY DOSE:75MG
     Route: 048
  6. SIMVASTATIN [Concomitant]
     Dosage: DAILY DOSE:40MG
     Route: 048

REACTIONS (1)
  - AORTIC ANEURYSM [None]
